FAERS Safety Report 23625019 (Version 3)
Quarter: 2024Q2

REPORT INFORMATION
  Report Type: Spontaneous
  Country: CH (occurrence: CH)
  Receive Date: 20240313
  Receipt Date: 20240404
  Transmission Date: 20240716
  Serious: Yes (Other)
  Sender: FDA-Public Use
  Company Number: CH-JNJFOC-20240328052

PATIENT
  Age: 41 Year
  Sex: Female

DRUGS (4)
  1. REMICADE [Suspect]
     Active Substance: INFLIXIMAB
     Indication: Colitis ulcerative
     Route: 041
     Dates: start: 20220118, end: 2024
  2. REMICADE [Suspect]
     Active Substance: INFLIXIMAB
     Route: 041
  3. PENTASA [Concomitant]
     Active Substance: MESALAMINE
     Indication: Anal fissure
     Route: 054
     Dates: start: 202210
  4. SCHERIPROCT [CINCHOCAINE HYDROCHLORIDE;PREDNISOLONE CAPROATE] [Concomitant]
     Indication: Anal fissure
     Dates: start: 202205

REACTIONS (2)
  - Systemic lupus erythematosus [Unknown]
  - Drug specific antibody [Unknown]

NARRATIVE: CASE EVENT DATE: 20221101
